FAERS Safety Report 9229479 (Version 3)
Quarter: 2013Q2

REPORT INFORMATION
  Report Type: Spontaneous
  Country: GB (occurrence: GB)
  Receive Date: 20130412
  Receipt Date: 20130424
  Transmission Date: 20140414
  Serious: Yes (Hospitalization)
  Sender: FDA-Public Use
  Company Number: GB-ABBOTT-03P-167-0237247-00

PATIENT
  Age: 49 Year
  Sex: Female

DRUGS (7)
  1. EPILIM [Suspect]
     Indication: EPILEPSY
     Route: 065
     Dates: start: 20030808, end: 20030808
  2. ZOTON [Suspect]
     Indication: EPILEPSY
     Route: 048
  3. ZOTON [Suspect]
     Indication: UNEVALUABLE EVENT
  4. IBUPROFEN [Suspect]
     Indication: UNEVALUABLE EVENT
  5. DIAZEPAM [Suspect]
     Indication: EPILEPSY
     Route: 065
  6. DIAZEPAM [Suspect]
     Indication: UNEVALUABLE EVENT
  7. CLOZAPINE [Concomitant]
     Indication: PRODUCT USED FOR UNKNOWN INDICATION

REACTIONS (7)
  - Sedation [Unknown]
  - Feeling hot [Recovered/Resolved]
  - Hyperhidrosis [Recovered/Resolved]
  - Disturbance in attention [Recovered/Resolved]
  - Somnolence [Recovered/Resolved]
  - Ataxia [Recovered/Resolved]
  - Overdose [Recovered/Resolved]
